FAERS Safety Report 4454626-X (Version None)
Quarter: 2004Q3

REPORT INFORMATION
  Report Type: 
  Country: None (occurrence: None)
  Receive Date: 20040826
  Receipt Date: 20040115
  Transmission Date: 20050211
  Serious: Yes (Life-Threatening)
  Sender: FDA-Public Use
  Company Number: 234857

PATIENT
  Sex: Female

DRUGS (1)
  1. NOVOLIN N(INSULIN HUMAN) SUSPENSION FOR INJECTION, 100IU/ML [Suspect]
     Indication: DIABETES MELLITUS
     Dosage: 10 IU, SINGLE, INTRAVENOUS
     Route: 042
     Dates: start: 20030301, end: 20030301

REACTIONS (1)
  - HYPOGLYCAEMIC COMA [None]
